FAERS Safety Report 12047451 (Version 1)
Quarter: 2016Q1

REPORT INFORMATION
  Report Type: Spontaneous
  Country: VE (occurrence: VE)
  Receive Date: 20160208
  Receipt Date: 20160208
  Transmission Date: 20160526
  Serious: Yes (Other)
  Sender: FDA-Public Use
  Company Number: PHHY2016VE016762

PATIENT
  Sex: Female

DRUGS (4)
  1. MIFLONIDE [Suspect]
     Active Substance: BUDESONIDE
     Indication: ASTHMA
     Dosage: 24 UG, QD
     Route: 055
     Dates: start: 2014
  2. LOSARTAN POTASSIUM. [Concomitant]
     Active Substance: LOSARTAN POTASSIUM
     Indication: HYPERTENSION
     Dosage: 100 MG, QD
     Route: 065
  3. FORADIL [Suspect]
     Active Substance: FORMOTEROL FUMARATE
     Indication: ASTHMA
     Dosage: 800 UG, QD
     Route: 055
     Dates: start: 2014
  4. GALVUS [Suspect]
     Active Substance: VILDAGLIPTIN
     Indication: DIABETES MELLITUS
     Dosage: 150 MG, QD
     Route: 048

REACTIONS (4)
  - Asphyxia [Not Recovered/Not Resolved]
  - Gait disturbance [Not Recovered/Not Resolved]
  - Malaise [Not Recovered/Not Resolved]
  - Dyspnoea [Not Recovered/Not Resolved]
